FAERS Safety Report 10282579 (Version 3)
Quarter: 2015Q3

REPORT INFORMATION
  Report Type: Spontaneous
  Country: US (occurrence: US)
  Receive Date: 20140707
  Receipt Date: 20150817
  Transmission Date: 20151125
  Serious: No
  Sender: FDA-Public Use
  Company Number: US-GILEAD-2014-0107588

PATIENT
  Age: 84 Year
  Sex: Male

DRUGS (3)
  1. LETAIRIS [Suspect]
     Active Substance: AMBRISENTAN
     Indication: CHRONIC OBSTRUCTIVE PULMONARY DISEASE
  2. LETAIRIS [Suspect]
     Active Substance: AMBRISENTAN
     Indication: PULMONARY HYPERTENSION
     Dosage: 5 MG, UNK
     Route: 065
     Dates: start: 20120807
  3. LETAIRIS [Suspect]
     Active Substance: AMBRISENTAN
     Indication: VASCULAR RESISTANCE PULMONARY INCREASED

REACTIONS (2)
  - Gait disturbance [Unknown]
  - Dyspnoea [Unknown]
